FAERS Safety Report 7088216-X (Version None)
Quarter: 2010Q4

REPORT INFORMATION
  Report Type: 
  Country: None (occurrence: None)
  Receive Date: 20101108
  Receipt Date: 20100901
  Transmission Date: 20110411
  Serious: Yes (Hospitalization)
  Sender: FDA-Public Use
  Company Number: US-BAYER-201012009NA

PATIENT
  Age: 13 Year
  Sex: Female
  Weight: 61 kg

DRUGS (18)
  1. YAZ [Suspect]
     Indication: PREMENSTRUAL SYNDROME
     Route: 048
     Dates: start: 20070103, end: 20071001
  2. YASMIN [Suspect]
     Indication: PREMENSTRUAL SYNDROME
     Route: 048
     Dates: start: 20071116
  3. LAMICTAL [Concomitant]
     Dosage: 1 YEAR
     Route: 065
  4. ZONEGRAN [Concomitant]
     Dosage: 3 MONTHS
     Route: 065
  5. ALBUTEROL [Concomitant]
     Dosage: 7 TO 8 YEARS
     Route: 065
  6. ZYRTEC [Concomitant]
     Dosage: APPROXIMATELY 4 YEARS
     Route: 065
  7. PRISTIQ [Concomitant]
     Dosage: APPROXIMATELY 1.5 YEARS
     Route: 065
  8. SEROQUEL [Concomitant]
     Dosage: APPROXIMATELY 3 YEARS
     Route: 065
  9. ABILIFY [Concomitant]
     Dosage: APPROXIMATELY 6 YEARS
     Route: 065
  10. GEODON [Concomitant]
     Dosage: APPROXIMATELY 6 YEARS
     Route: 065
  11. SINGULAIR [Concomitant]
     Dosage: APPROXIMATELY 4 YEARS
     Route: 065
  12. PHENERGAN [Concomitant]
     Indication: PAIN
     Route: 065
  13. TRAMADOL HCL [Concomitant]
     Indication: PAIN
     Route: 065
  14. DOXYCYCLINE [Concomitant]
     Indication: PAIN
     Route: 065
     Dates: start: 20070905
  15. PROZAC [Concomitant]
     Indication: PAIN
  16. RISPERDAL [Concomitant]
     Indication: PAIN
  17. LONOX [Concomitant]
     Route: 065
     Dates: start: 20070905
  18. MAXALT [Concomitant]
     Route: 065
     Dates: start: 20070904

REACTIONS (2)
  - CHOLECYSTITIS [None]
  - DEPRESSION [None]
